FAERS Safety Report 23802181 (Version 2)
Quarter: 2024Q2

REPORT INFORMATION
  Report Type: Spontaneous
  Country: AT (occurrence: AT)
  Receive Date: 20240501
  Receipt Date: 20240521
  Transmission Date: 20240716
  Serious: Yes (Other)
  Sender: FDA-Public Use
  Company Number: AT-JNJFOC-20240477877

PATIENT
  Age: 4 Decade

DRUGS (1)
  1. STELARA [Suspect]
     Active Substance: USTEKINUMAB
     Indication: Psoriasis
     Route: 058
     Dates: start: 201801

REACTIONS (2)
  - Autoimmune thyroiditis [Unknown]
  - Vitiligo [Unknown]

NARRATIVE: CASE EVENT DATE: 20220901
